FAERS Safety Report 12826928 (Version 1)
Quarter: 2016Q4

REPORT INFORMATION
  Report Type: Spontaneous
  Country: US (occurrence: US)
  Receive Date: 20161007
  Receipt Date: 20161007
  Transmission Date: 20170207
  Serious: No
  Sender: FDA-Public Use
  Company Number: US-INDIVIOR LIMITED-INDV-085539-2015

PATIENT
  Age: 41 Year
  Sex: Female

DRUGS (1)
  1. SUBOXONE [Suspect]
     Active Substance: BUPRENORPHINE HYDROCHLORIDE\NALOXONE HYDROCHLORIDE
     Indication: DRUG DEPENDENCE
     Dosage: 8 MG, TID, ABOUT 2 YEARS
     Route: 060
     Dates: start: 2013, end: 20151111

REACTIONS (7)
  - Product use issue [Recovered/Resolved]
  - Therapy cessation [Recovered/Resolved]
  - Abdominal pain upper [Not Recovered/Not Resolved]
  - Sneezing [Not Recovered/Not Resolved]
  - Chills [Not Recovered/Not Resolved]
  - Drug withdrawal syndrome [Not Recovered/Not Resolved]
  - Diarrhoea [Not Recovered/Not Resolved]

NARRATIVE: CASE EVENT DATE: 2013
